FAERS Safety Report 16429829 (Version 2)
Quarter: 2019Q4

REPORT INFORMATION
  Report Type: Report from Study
  Country: JP (occurrence: JP)
  Receive Date: 20190614
  Receipt Date: 20191015
  Transmission Date: 20200122
  Serious: Yes (Death, Other)
  Sender: FDA-Public Use
  Company Number: JP-ASTELLAS-2018JP023985

PATIENT
  Age: 11 Year
  Sex: Male
  Weight: 40 kg

DRUGS (41)
  1. ASP2215 [Suspect]
     Active Substance: GILTERITINIB
     Indication: ACUTE MYELOID LEUKAEMIA RECURRENT
     Route: 050
     Dates: start: 20181217, end: 20181220
  2. TEICOPLANIN [Concomitant]
     Active Substance: TEICOPLANIN
     Dosage: 400 MG/DAY, UNKNOWN FREQ.
     Route: 065
     Dates: start: 20190310, end: 20190314
  3. GRANISETRON [Concomitant]
     Active Substance: GRANISETRON
     Indication: PROPHYLAXIS
     Dosage: 1.6 MG/DAY, UNKNOWN FREQ.
     Route: 065
     Dates: end: 20190107
  4. ACICLOVIR [Concomitant]
     Active Substance: ACYCLOVIR
     Indication: PROPHYLAXIS
     Dosage: 200 MG/DAY, UNKNOWN FREQ.
     Route: 065
     Dates: start: 20181220, end: 20190411
  5. NEO-MINOPHAGEN C [Concomitant]
     Active Substance: AMMONIUM GLYCYRRHIZATE
     Indication: PRODUCT USED FOR UNKNOWN INDICATION
     Dosage: 40 ML/DAY, UNKNOWN FREQ.
     Route: 065
     Dates: start: 20181221, end: 20190507
  6. VENOGLOBULIN IH [Concomitant]
     Active Substance: HUMAN IMMUNOGLOBULIN G
     Dosage: 10 G/DAY, UNKNOWN FREQ.
     Route: 065
     Dates: start: 20190306, end: 20190306
  7. ETOPOSIDE. [Concomitant]
     Active Substance: ETOPOSIDE
     Dosage: 140MG/DAY, UNKNOWN FREQ.
     Route: 065
     Dates: start: 20190510, end: 20190510
  8. TEICOPLANIN [Concomitant]
     Active Substance: TEICOPLANIN
     Dosage: 400 MG/DAY, UNKNOWN FREQ.
     Route: 065
     Dates: start: 20190304, end: 20190306
  9. GLIVEC [Concomitant]
     Active Substance: IMATINIB MESYLATE
     Indication: ACUTE MYELOID LEUKAEMIA RECURRENT
     Dosage: 400 MG/DAY, UNKNOWN FREQ.
     Route: 048
     Dates: start: 20190129, end: 20190401
  10. AMIKACIN SULFATE. [Concomitant]
     Active Substance: AMIKACIN SULFATE
     Indication: FEBRILE NEUTROPENIA
     Dosage: 600 MG/DAY, UNKNOWN FREQ.
     Route: 065
     Dates: end: 20181219
  11. CANCIDAS [Concomitant]
     Active Substance: CASPOFUNGIN ACETATE
     Indication: PROPHYLAXIS
     Dosage: 50 MG/DAY, UNKNOWN FREQ.
     Route: 065
     Dates: end: 20190603
  12. RISPERDAL [Concomitant]
     Active Substance: RISPERIDONE
     Indication: INSOMNIA
     Dosage: 1 MG/DAY, UNKNOWN FREQ.
     Route: 048
     Dates: end: 20190603
  13. CYLOCIDE [Concomitant]
     Active Substance: CYTARABINE
     Indication: ACUTE MYELOID LEUKAEMIA RECURRENT
     Dosage: 30 MG/DAY, UNKNOWN FREQ.
     Route: 028
     Dates: start: 20190219, end: 20190219
  14. ETOPOSIDE. [Concomitant]
     Active Substance: ETOPOSIDE
     Indication: ACUTE MYELOID LEUKAEMIA RECURRENT
     Dosage: 200 MG/DAY, UNKNOWN FREQ.
     Route: 065
     Dates: start: 20190219, end: 20190221
  15. POLYGLOBIN [Concomitant]
     Active Substance: HUMAN IMMUNOGLOBULIN G
     Indication: PROPHYLAXIS
     Dosage: 10 G/DAY, UNKNOWN FREQ.
     Route: 065
     Dates: start: 20190508, end: 20190508
  16. RASURITEK [Concomitant]
     Active Substance: RASBURICASE
     Indication: PROPHYLAXIS
     Dosage: 7.5 MG/DAY, UNKNOWN FREQ.
     Route: 065
     Dates: start: 20190527, end: 20190527
  17. ASP2215 [Suspect]
     Active Substance: GILTERITINIB
     Route: 048
     Dates: start: 20190228, end: 20190527
  18. METHYLPREDNISOLONE ACETATE. [Concomitant]
     Active Substance: METHYLPREDNISOLONE ACETATE
     Indication: PRODUCT USED FOR UNKNOWN INDICATION
     Dosage: 24 MG/DAY, UNKNOWN FREQ.
     Route: 065
     Dates: end: 20181227
  19. DAIPHEN [Concomitant]
     Active Substance: SULFAMETHOXAZOLE\TRIMETHOPRIM
     Indication: PROPHYLAXIS
     Dosage: 1 DF/DAY, UNKNOWN FREQ.
     Route: 048
     Dates: end: 20190603
  20. CEFEPIME [Concomitant]
     Active Substance: CEFEPIME HYDROCHLORIDE
     Dosage: 3000 MG/DAY, UNKNOWN FREQ.
     Route: 065
     Dates: start: 20190225, end: 20190601
  21. SOLU-MEDROL [Concomitant]
     Active Substance: METHYLPREDNISOLONE SODIUM SUCCINATE
     Indication: PRODUCT USED FOR UNKNOWN INDICATION
     Dosage: 56.25 MG/DAY, UNKNOWN FREQ.
     Route: 065
     Dates: start: 20190511, end: 20190603
  22. ASP2215 [Suspect]
     Active Substance: GILTERITINIB
     Route: 050
     Dates: start: 20181221, end: 20181225
  23. MEROPENEM. [Concomitant]
     Active Substance: MEROPENEM
     Indication: FEBRILE NEUTROPENIA
     Dosage: 3000 MG/DAY, UNKNOWN FREQ.
     Route: 065
     Dates: end: 20190104
  24. VENOGLOBULIN IH [Concomitant]
     Active Substance: HUMAN IMMUNOGLOBULIN G
     Indication: PROPHYLAXIS
     Dosage: 10 G/DAY, UNKNOWN FREQ.
     Route: 065
     Dates: start: 20190101, end: 20190101
  25. OMEPRAZOLE. [Concomitant]
     Active Substance: OMEPRAZOLE
     Indication: PROPHYLAXIS
     Dosage: 20 MG/DAY, UNKNOWN FREQ.
     Route: 065
     Dates: start: 20190107, end: 20190125
  26. GLIVEC [Concomitant]
     Active Substance: IMATINIB MESYLATE
     Dosage: 400 MG/DAY, UNKNOWN FREQ.
     Route: 048
     Dates: start: 20190514, end: 20190527
  27. ICLUSIG [Concomitant]
     Active Substance: PONATINIB
     Indication: ACUTE MYELOID LEUKAEMIA RECURRENT
     Dosage: 30 MG/DAY, UNKNOWN FREQ.
     Route: 048
     Dates: start: 20190528, end: 20190602
  28. MORPHINE HYDROCHLORIDE TRIHYDRATE [Concomitant]
     Active Substance: MORPHINE HYDROCHLORIDE
     Indication: ARTHRALGIA
     Dosage: UNK UNK, UNKNOWN FREQ.
     Route: 065
     Dates: start: 20190531, end: 20190603
  29. ASP2215 [Suspect]
     Active Substance: GILTERITINIB
     Route: 048
     Dates: start: 20181226, end: 20190218
  30. SPRYCEL [Suspect]
     Active Substance: DASATINIB
     Indication: ACUTE MYELOID LEUKAEMIA RECURRENT
     Dosage: 140 MG/DAY, UNKNOWN FREQ.
     Route: 048
     Dates: start: 20190402, end: 20190513
  31. TEICOPLANIN [Concomitant]
     Active Substance: TEICOPLANIN
     Dosage: 400 MG/DAY, UNKNOWN FREQ.
     Route: 065
     Dates: start: 20181222, end: 20181228
  32. LIMETHASON                         /00016002/ [Concomitant]
     Indication: DISSEMINATED INTRAVASCULAR COAGULATION
     Dosage: 5 MG/DAY, UNKNOWN FREQ.
     Route: 065
     Dates: end: 20181228
  33. RECOMODULIN [Concomitant]
     Active Substance: THROMBOMODULIN ALFA
     Indication: DISSEMINATED INTRAVASCULAR COAGULATION
     Dosage: 12800 IU/DAY, UNKNOWN FREQ.
     Route: 065
     Dates: end: 20181227
  34. CEFEPIME [Concomitant]
     Active Substance: CEFEPIME HYDROCHLORIDE
     Indication: FEBRILE NEUTROPENIA
     Dosage: 4000 MG/DAY, UNKNOWN FREQ.
     Route: 065
     Dates: start: 20190105, end: 20190114
  35. METHOTREXATE. [Concomitant]
     Active Substance: METHOTREXATE
     Indication: ACUTE MYELOID LEUKAEMIA RECURRENT
     Dosage: 12 MG/DAY, UNKNOWN FREQ.
     Route: 028
     Dates: start: 20190219, end: 20190219
  36. MITOXANTRONE [Concomitant]
     Active Substance: MITOXANTRONE HYDROCHLORIDE
     Indication: ACUTE MYELOID LEUKAEMIA RECURRENT
     Dosage: 6.8 MG/DAY, UNKNOWN FREQ.
     Route: 065
     Dates: start: 20190222, end: 20190224
  37. MEROPENEM. [Concomitant]
     Active Substance: MEROPENEM
     Dosage: 2000 MG/DAY, UNKNOWN FREQ.
     Route: 065
     Dates: start: 20190601, end: 20190603
  38. AMBISOME [Concomitant]
     Active Substance: AMPHOTERICIN B
     Indication: FEBRILE NEUTROPENIA
     Dosage: 100 MG/DAY, UNKNOWN FREQ.
     Route: 065
     Dates: start: 20181227, end: 20190118
  39. CYLOCIDE [Concomitant]
     Active Substance: CYTARABINE
     Indication: ACUTE MYELOID LEUKAEMIA RECURRENT
     Dosage: 270 MG/DAY, UNKNOWN FREQ.
     Route: 065
     Dates: start: 20190222, end: 20190226
  40. TEICOPLANIN [Concomitant]
     Active Substance: TEICOPLANIN
     Indication: FEBRILE NEUTROPENIA
     Dosage: 400 MG/DAY, UNKNOWN FREQ.
     Route: 065
     Dates: end: 20181218
  41. NEXAVAR [Concomitant]
     Active Substance: SORAFENIB
     Indication: PRODUCT USED FOR UNKNOWN INDICATION
     Dosage: UNK UNK, UNKNOWN FREQ.
     Route: 065
     Dates: start: 201807

REACTIONS (15)
  - Febrile neutropenia [Not Recovered/Not Resolved]
  - Neutropenia [Not Recovered/Not Resolved]
  - Leukocytosis [Not Recovered/Not Resolved]
  - Alanine aminotransferase increased [Recovering/Resolving]
  - Acute myeloid leukaemia [Fatal]
  - Thrombocytopenia [Not Recovered/Not Resolved]
  - Off label use [Unknown]
  - Arthralgia [Not Recovered/Not Resolved]
  - Cardiac failure [Recovering/Resolving]
  - Febrile neutropenia [Recovering/Resolving]
  - Anaemia [Not Recovered/Not Resolved]
  - Philadelphia chromosome positive [Unknown]
  - Aspartate aminotransferase increased [Recovered/Resolved]
  - Febrile neutropenia [Recovering/Resolving]
  - Hypoxia [Recovering/Resolving]

NARRATIVE: CASE EVENT DATE: 20181217
